FAERS Safety Report 21286551 (Version 2)
Quarter: 2022Q3

REPORT INFORMATION
  Report Type: Spontaneous
  Country: US (occurrence: US)
  Receive Date: 20220902
  Receipt Date: 20220906
  Transmission Date: 20221027
  Serious: No
  Sender: FDA-Public Use
  Company Number: US-PFIZER INC-202201113509

PATIENT
  Age: 32 Year
  Sex: Female
  Weight: 68.49 kg

DRUGS (1)
  1. PAXLOVID [Suspect]
     Active Substance: NIRMATRELVIR\RITONAVIR
     Indication: COVID-19 treatment
     Dosage: [PF-07321332 300 MG]/[RITONAVIR 100 MG]; 2X/DAY
     Dates: start: 20220830

REACTIONS (6)
  - Dysgeusia [Not Recovered/Not Resolved]
  - Paraesthesia [Recovered/Resolved]
  - Headache [Unknown]
  - Nervousness [Unknown]
  - Palpitations [Recovered/Resolved]
  - Oropharyngeal pain [Unknown]

NARRATIVE: CASE EVENT DATE: 20220801
